FAERS Safety Report 5307603-0 (Version None)
Quarter: 2007Q2

REPORT INFORMATION
  Report Type: 
  Country: None (occurrence: None)
  Receive Date: 20070425
  Receipt Date: 20070419
  Transmission Date: 20071010
  Serious: Yes (Hospitalization)
  Sender: FDA-Public Use
  Company Number: TW-ROXANE LABORATORIES, INC-2007-BP-05418RO

PATIENT
  Age: 25 Year
  Sex: Male
  Weight: 68 kg

DRUGS (2)
  1. LIDOCAINE [Suspect]
     Indication: LOCAL ANAESTHESIA
     Dosage: 3 ML OF 2% SOLUTION
     Route: 045
  2. EPINEPHRINE [Suspect]
     Indication: LOCAL ANAESTHESIA
     Dosage: 3 ML OF 1:200,000
     Route: 045

REACTIONS (4)
  - APNOEA [None]
  - CONVULSION [None]
  - CYANOSIS [None]
  - UNRESPONSIVE TO STIMULI [None]
